FAERS Safety Report 6645537-X (Version None)
Quarter: 2010Q1

REPORT INFORMATION
  Report Type: 
  Country: None (occurrence: None)
  Receive Date: 20100323
  Receipt Date: 20100304
  Transmission Date: 20100710
  Serious: No
  Sender: FDA-Public Use
  Company Number: 2008BI032579

PATIENT
  Sex: Female

DRUGS (1)
  1. TYSABRI [Suspect]
     Indication: MULTIPLE SCLEROSIS
     Route: 042
     Dates: start: 20080917

REACTIONS (4)
  - BALANCE DISORDER [None]
  - FALL [None]
  - HEADACHE [None]
  - MUSCULOSKELETAL STIFFNESS [None]
